FAERS Safety Report 9932335 (Version 1)
Quarter: 2014Q1

REPORT INFORMATION
  Report Type: Spontaneous
  Country: DE (occurrence: None)
  Receive Date: 20140226
  Receipt Date: 20140226
  Transmission Date: 20141002
  Serious: Yes (Hospitalization, Other)
  Sender: FDA-Public Use
  Company Number: 1402-0381

PATIENT
  Age: 78 Year
  Sex: Female

DRUGS (2)
  1. EYLEA [Suspect]
     Indication: AGE-RELATED MACULAR DEGENERATION
  2. MACU-VISION (MACU-VISION) [Concomitant]

REACTIONS (5)
  - Fall [None]
  - Head injury [None]
  - Malaise [None]
  - Cerebral haemorrhage [None]
  - Malaise [None]
